FAERS Safety Report 22353215 (Version 1)
Quarter: 2023Q2

REPORT INFORMATION
  Report Type: Spontaneous
  Country: GB (occurrence: GB)
  Receive Date: 20230523
  Receipt Date: 20230523
  Transmission Date: 20230721
  Serious: Yes (Other)
  Sender: FDA-Public Use
  Company Number: GB-MHRA-TPP18997356C9095532YC1683620601515

PATIENT
  Age: 45 Year
  Sex: Male
  Weight: 71 kg

DRUGS (7)
  1. FLUOXETINE [Suspect]
     Active Substance: FLUOXETINE HYDROCHLORIDE
     Indication: Product used for unknown indication
     Dosage: UNK
     Route: 065
     Dates: start: 20230503
  2. Cetraben [Concomitant]
     Indication: Product used for unknown indication
     Dosage: UNK UNK, AS DIRECTED (USE AS DIRECTED)
     Route: 065
     Dates: start: 20210823
  3. EPILIM [Concomitant]
     Active Substance: VALPROATE SODIUM
     Indication: Product used for unknown indication
     Dosage: 5 DOSAGE FORM, TWO TIMES A DAY (MORNING AND EVENING.)
     Route: 065
     Dates: start: 20220422
  4. KETOCONAZOLE [Concomitant]
     Active Substance: KETOCONAZOLE
     Indication: Product used for unknown indication
     Dosage: 1 DOSAGE FORM, AS NECESSARY (SHAMPOO HAIR + SCALP UP TO TWICE A WEEK)
     Route: 065
     Dates: start: 20211130
  5. LACOSAMIDE [Concomitant]
     Active Substance: LACOSAMIDE
     Indication: Product used for unknown indication
     Dosage: 5 MILLILITER, TWO TIMES A DAY
     Route: 065
     Dates: start: 20220422
  6. MIDAZOLAM [Concomitant]
     Active Substance: MIDAZOLAM
     Indication: Product used for unknown indication
     Dosage: UNK (ONE SYRINGE-FULL IN MOUTH (IF CONVULSION LASTS ...)
     Route: 065
     Dates: start: 20220920
  7. TRAZODONE [Concomitant]
     Active Substance: TRAZODONE HYDROCHLORIDE
     Indication: Product used for unknown indication
     Dosage: 2 DOSAGE FORM, ONCE A DAY (AT NIGHT)
     Route: 065
     Dates: start: 20201215

REACTIONS (1)
  - Seizure [Recovered/Resolved]
